FAERS Safety Report 6899661-7 (Version None)
Quarter: 2010Q3

REPORT INFORMATION
  Report Type: 
  Country: None (occurrence: None)
  Receive Date: 20100708
  Receipt Date: 20100301
  Transmission Date: 20110219
  Serious: Yes (Other)
  Sender: FDA-Public Use
  Company Number: 2010027149

PATIENT
  Age: 44 Year
  Sex: Male
  Weight: 113 kg

DRUGS (3)
  1. CHANTIX [Suspect]
     Dosage: 0.5 MG, 1X/DAY, ORAL, 1 MG 2X/DAY
     Route: 048
     Dates: start: 20071101, end: 20071101
  2. CHANTIX [Suspect]
     Dosage: 0.5 MG, 1X/DAY, ORAL, 1 MG 2X/DAY
     Route: 048
     Dates: start: 20071101, end: 20071201
  3. VICODIN [Concomitant]

REACTIONS (3)
  - HYPERSENSITIVITY [None]
  - PRURITUS [None]
  - RASH [None]
